FAERS Safety Report 9458231 (Version 2)
Quarter: 2014Q1

REPORT INFORMATION
  Report Type: Spontaneous
  Country: US (occurrence: US)
  Receive Date: 20130814
  Receipt Date: 20140310
  Transmission Date: 20141002
  Serious: Yes (Hospitalization)
  Sender: FDA-Public Use
  Company Number: US-BAYER-2013-098310

PATIENT
  Age: 32 Year
  Sex: Female
  Weight: 60.77 kg

DRUGS (4)
  1. BEYAZ [Suspect]
     Indication: MENORRHAGIA
     Dosage: UNK
     Dates: start: 201107, end: 201109
  2. BEYAZ [Suspect]
     Indication: OVARIAN CYST
  3. IRON SUPPLEMENT [Concomitant]
     Indication: MENORRHAGIA
     Dosage: DAILY
     Route: 048
     Dates: start: 201106, end: 201109
  4. IRON SUPPLEMENT [Concomitant]
     Indication: BLOOD IRON DECREASED

REACTIONS (5)
  - Pulmonary embolism [None]
  - Injury [None]
  - Chest pain [None]
  - Emotional distress [None]
  - Off label use [None]
